FAERS Safety Report 8474417-2 (Version None)
Quarter: 2012Q2

REPORT INFORMATION
  Report Type: 
  Country: None (occurrence: None)
  Receive Date: 20120628
  Receipt Date: 20120621
  Transmission Date: 20120825
  Serious: Yes (Hospitalization)
  Sender: FDA-Public Use
  Company Number: PHHY2012BR054082

PATIENT
  Sex: Male

DRUGS (3)
  1. FORMOTEROL FUMARATE [Suspect]
     Dates: start: 20110101
  2. FORMOTEROL FUMARATE [Suspect]
     Indication: EMPHYSEMA
     Dosage: 2 DF, QD
     Dates: start: 20100101, end: 20100101
  3. FORMOTEROL FUMARATE [Suspect]
     Dates: start: 20120620

REACTIONS (2)
  - EMPHYSEMA [None]
  - CONDITION AGGRAVATED [None]
